FAERS Safety Report 10460455 (Version 14)
Quarter: 2020Q2

REPORT INFORMATION
  Report Type: Report from Study
  Country: CA (occurrence: CA)
  Receive Date: 20140917
  Receipt Date: 20200513
  Transmission Date: 20200713
  Serious: Yes (Other)
  Sender: FDA-Public Use
  Company Number: CA-ROCHE-1344343

PATIENT
  Age: 55 Year
  Sex: Female
  Weight: 73.3 kg

DRUGS (21)
  1. ACTEMRA [Suspect]
     Active Substance: TOCILIZUMAB
     Dosage: ONGOING
     Route: 042
     Dates: start: 20200213
  2. OLANZAPINE. [Concomitant]
     Active Substance: OLANZAPINE
  3. GRAVOL [Concomitant]
     Active Substance: DIMENHYDRINATE
  4. ACTEMRA [Suspect]
     Active Substance: TOCILIZUMAB
     Route: 042
     Dates: start: 20190823
  5. ACTEMRA [Suspect]
     Active Substance: TOCILIZUMAB
     Route: 042
     Dates: start: 20191219
  6. METHOTREXATE. [Concomitant]
     Active Substance: METHOTREXATE
  7. TYLENOL [Concomitant]
     Active Substance: ACETAMINOPHEN
  8. ACTEMRA [Suspect]
     Active Substance: TOCILIZUMAB
     Route: 042
     Dates: start: 20190509
  9. ALPRAZOLAM. [Concomitant]
     Active Substance: ALPRAZOLAM
  10. ACTEMRA [Suspect]
     Active Substance: TOCILIZUMAB
     Route: 042
     Dates: start: 20200116
  11. ACTEMRA [Suspect]
     Active Substance: TOCILIZUMAB
     Dosage: ONGOING
     Route: 042
     Dates: start: 20200213
  12. ACTEMRA [Suspect]
     Active Substance: TOCILIZUMAB
     Route: 042
     Dates: start: 20191121
  13. OXYBUTYNIN. [Concomitant]
     Active Substance: OXYBUTYNIN CHLORIDE
  14. VOLTAREN [DICLOFENAC] [Concomitant]
     Active Substance: DICLOFENAC SODIUM
  15. ACTEMRA [Suspect]
     Active Substance: TOCILIZUMAB
     Indication: RHEUMATOID ARTHRITIS
     Route: 042
     Dates: start: 20130905
  16. FOLIC ACID. [Concomitant]
     Active Substance: FOLIC ACID
  17. ALEVE [Concomitant]
     Active Substance: NAPROXEN SODIUM
  18. ACTEMRA [Suspect]
     Active Substance: TOCILIZUMAB
     Route: 042
     Dates: start: 20140219
  19. ACTEMRA [Suspect]
     Active Substance: TOCILIZUMAB
     Route: 042
     Dates: start: 20200116
  20. ACTEMRA [Suspect]
     Active Substance: TOCILIZUMAB
     Route: 042
     Dates: start: 20190606
  21. TRAZODONE [Concomitant]
     Active Substance: TRAZODONE HYDROCHLORIDE

REACTIONS (23)
  - Influenza [Recovered/Resolved]
  - Myalgia [Recovering/Resolving]
  - Oropharyngeal pain [Unknown]
  - Contusion [Unknown]
  - Diarrhoea haemorrhagic [Not Recovered/Not Resolved]
  - Weight increased [Recovered/Resolved]
  - Stomatitis [Recovering/Resolving]
  - Paraesthesia [Not Recovered/Not Resolved]
  - Nausea [Not Recovered/Not Resolved]
  - Tooth fracture [Not Recovered/Not Resolved]
  - Tooth infection [Unknown]
  - Tooth abscess [Recovered/Resolved]
  - Vasculitis [Unknown]
  - Pyrexia [Recovered/Resolved]
  - Lyme disease [Recovered/Resolved]
  - Dysphagia [Not Recovered/Not Resolved]
  - Lethargy [Recovering/Resolving]
  - Bronchitis [Not Recovered/Not Resolved]
  - Transient ischaemic attack [Unknown]
  - Pain [Not Recovered/Not Resolved]
  - Weight decreased [Recovering/Resolving]
  - Rash [Not Recovered/Not Resolved]
  - Vomiting [Not Recovered/Not Resolved]

NARRATIVE: CASE EVENT DATE: 2014
